FAERS Safety Report 6899172-9 (Version None)
Quarter: 2010Q3

REPORT INFORMATION
  Report Type: 
  Country: None (occurrence: None)
  Receive Date: 20100802
  Receipt Date: 20080122
  Transmission Date: 20110219
  Serious: No
  Sender: FDA-Public Use
  Company Number: US-PFIZER INC-2008004103

PATIENT
  Sex: Female
  Weight: 98.636 kg

DRUGS (10)
  1. LYRICA [Suspect]
     Indication: FIBROMYALGIA
     Route: 048
     Dates: start: 20080109
  2. LYRICA [Suspect]
     Indication: DIABETIC NEUROPATHY
  3. METFORMIN HCL [Concomitant]
  4. AMARYL [Concomitant]
  5. LISINOPRIL [Concomitant]
  6. LAMICTAL [Concomitant]
  7. LEXAPRO [Concomitant]
  8. LORAZEPAM [Concomitant]
  9. ALPRAZOLAM [Concomitant]
  10. MONTELUKAST SODIUM [Concomitant]

REACTIONS (1)
  - DRUG INEFFECTIVE [None]
